FAERS Safety Report 9859175 (Version 1)
Quarter: 2014Q1

REPORT INFORMATION
  Report Type: Spontaneous
  Country: GB (occurrence: None)
  Receive Date: 20140129
  Receipt Date: 20140129
  Transmission Date: 20141002
  Serious: Yes (Other)
  Sender: FDA-Public Use
  Company Number: AUR-APL-2014-00509

PATIENT
  Age: 55 Year
  Sex: Male

DRUGS (3)
  1. RIBAVIRIN [Suspect]
     Indication: HEPATITIS C
     Dosage: (2 IN 1 D), ORAL
     Route: 048
     Dates: start: 20121122
  2. INCIVO (TELAPREVIR) [Suspect]
     Indication: HEPATITIS C
     Dosage: 2250 MG (750 MG, 3 IN 1 D), ORAL
     Route: 048
     Dates: start: 20121122, end: 20130214
  3. PEGINTERFERON ALFA-2B (PEGINTERFERON ALFA-2B) [Suspect]
     Indication: HEPATITIS C
     Dosage: (1 IN 1 WK), INJECTION
     Dates: start: 20121122

REACTIONS (5)
  - Pruritus [None]
  - Rash [None]
  - Blister [None]
  - Rash vesicular [None]
  - Rash erythematous [None]
